FAERS Safety Report 6354700-7 (Version None)
Quarter: 2009Q3

REPORT INFORMATION
  Report Type: 
  Country: None (occurrence: None)
  Receive Date: 20090909
  Receipt Date: 20090820
  Transmission Date: 20100115
  Serious: Yes (Hospitalization)
  Sender: FDA-Public Use
  Company Number: 2009AL001943

PATIENT
  Age: 76 Year
  Sex: Male

DRUGS (19)
  1. DIGOXIN [Suspect]
     Dosage: 0.25MG, DAILY, PO
     Route: 048
     Dates: start: 20010420
  2. LOPRESSOR [Concomitant]
  3. LISINOPRIL [Concomitant]
  4. ADVAIR HFA [Concomitant]
  5. ATROVENT [Concomitant]
  6. LASIX [Concomitant]
  7. METOPROLOL TARTRATE [Concomitant]
  8. ISOSORBIDE [Concomitant]
  9. PRAVASTATIN [Concomitant]
  10. NEXIUM [Concomitant]
  11. SPIRONOLACTONE [Concomitant]
  12. ASPIRIN [Concomitant]
  13. POTASSIUM CHLORIDE [Concomitant]
  14. FLEXERIL [Concomitant]
  15. AMBIEN [Concomitant]
  16. IMDUR [Concomitant]
  17. SPIRIVA [Concomitant]
  18. ZESTRIL [Concomitant]
  19. BAYCOL [Concomitant]

REACTIONS (15)
  - ATRIAL FIBRILLATION [None]
  - BLOOD GLUCOSE INCREASED [None]
  - BRONCHITIS [None]
  - CARDIAC FAILURE CONGESTIVE [None]
  - CHRONIC OBSTRUCTIVE PULMONARY DISEASE [None]
  - CORONARY ARTERY OCCLUSION [None]
  - INJURY [None]
  - INTERVERTEBRAL DISC DEGENERATION [None]
  - LUMBAR SPINAL STENOSIS [None]
  - OSTEOARTHRITIS [None]
  - PERIPHERAL VASCULAR DISORDER [None]
  - RENAL FAILURE ACUTE [None]
  - SCOLIOSIS [None]
  - SPINAL OSTEOARTHRITIS [None]
  - THERAPEUTIC AGENT TOXICITY [None]
